FAERS Safety Report 23065923 (Version 1)
Quarter: 2023Q4

REPORT INFORMATION
  Report Type: Spontaneous
  Country: US (occurrence: US)
  Receive Date: 20231014
  Receipt Date: 20231014
  Transmission Date: 20240110
  Serious: Yes (Hospitalization, Other)
  Sender: FDA-Public Use
  Company Number: US-JNJFOC-20231020640

PATIENT
  Sex: Female

DRUGS (1)
  1. XARELTO [Suspect]
     Active Substance: RIVAROXABAN
     Indication: Product used for unknown indication
     Route: 048

REACTIONS (7)
  - Pulmonary embolism [Unknown]
  - Knee operation [Unknown]
  - Thrombosis [Unknown]
  - Contusion [Not Recovered/Not Resolved]
  - Tinnitus [Unknown]
  - Balance disorder [Unknown]
  - Vertigo [Unknown]

NARRATIVE: CASE EVENT DATE: 20230601
